FAERS Safety Report 6518851-6 (Version None)
Quarter: 2009Q4

REPORT INFORMATION
  Report Type: 
  Country: None (occurrence: None)
  Receive Date: 20091228
  Receipt Date: 20091204
  Transmission Date: 20100525
  Serious: No
  Sender: FDA-Public Use
  Company Number: US-BAYER-200942305NA

PATIENT
  Age: 59 Year
  Sex: Female

DRUGS (1)
  1. MAGNEVIST [Suspect]
     Indication: NUCLEAR MAGNETIC RESONANCE IMAGING
     Dates: start: 20091130, end: 20091130

REACTIONS (7)
  - COUGH [None]
  - EYE SWELLING [None]
  - HEART RATE INCREASED [None]
  - NASAL CONGESTION [None]
  - OEDEMA PERIPHERAL [None]
  - URTICARIA [None]
  - WHEEZING [None]
